FAERS Safety Report 19742437 (Version 1)
Quarter: 2021Q3

REPORT INFORMATION
  Report Type: Spontaneous
  Country: DE (occurrence: DE)
  Receive Date: 20210824
  Receipt Date: 20210824
  Transmission Date: 20211014
  Serious: Yes (Other)
  Sender: FDA-Public Use
  Company Number: DE-MYLANLABS-2021M1054440

PATIENT
  Age: 34 Year
  Sex: Male

DRUGS (19)
  1. ENDOXAN                            /00021101/ [Suspect]
     Active Substance: CYCLOPHOSPHAMIDE
     Dosage: ONE COURSE AS SECONDARY TREATMENT
  2. ADRIAMYCIN [Suspect]
     Active Substance: DOXORUBICIN HYDROCHLORIDE
     Indication: PRODUCT USED FOR UNKNOWN INDICATION
     Dosage: ONE COURSE AS SECONDARY TREATMENT
     Route: 065
  3. ENDOXAN                            /00021101/ [Suspect]
     Active Substance: CYCLOPHOSPHAMIDE
     Dosage: INTRAVENOUSLY OR ORALLY DIRECTLY AFTERWARD (BLOCK A) ON 1?5 DAYS
  4. TENIPOSIDE. [Suspect]
     Active Substance: TENIPOSIDE
     Indication: BURKITT^S LYMPHOMA
     Dosage: 165 MILLIGRAM/SQ. METER OVER 1 H (BLOCK A)
     Route: 042
  5. CYTARABINE. [Suspect]
     Active Substance: CYTARABINE
     Indication: PRODUCT USED FOR UNKNOWN INDICATION
     Dosage: ONE COURSE AS SECONDARY TREATMENT
     Route: 065
  6. METHOTREXATE. [Suspect]
     Active Substance: METHOTREXATE
     Indication: PRODUCT USED FOR UNKNOWN INDICATION
     Dosage: 50 MILLIGRAM/SQ. METER (BLOCK A)
     Route: 040
  7. METHOTREXATE. [Suspect]
     Active Substance: METHOTREXATE
     Indication: BURKITT^S LYMPHOMA
     Dosage: 15 MILLIGRAM BLOCK A
     Route: 037
  8. METHOTREXATE. [Suspect]
     Active Substance: METHOTREXATE
     Dosage: 15 MILLIGRAM AFTER AT LEAST 14 DAYS (BLOCK B)
     Route: 037
  9. DEXAMETHASONE. [Suspect]
     Active Substance: DEXAMETHASONE
     Indication: BURKITT^S LYMPHOMA
     Dosage: UNK ONE COURSE
     Route: 065
  10. ADRIAMYCIN [Suspect]
     Active Substance: DOXORUBICIN HYDROCHLORIDE
     Indication: BURKITT^S LYMPHOMA
     Dosage: AFTER AT LEAST 14 DAYS (BLOCK B)
     Route: 042
  11. PREDNISONE. [Suspect]
     Active Substance: PREDNISONE
     Indication: BURKITT^S LYMPHOMA
     Dosage: 0.5?1 MG/KG, ON DAYS 1?5 AS PRELIMINARY PHASE (FACULTATIVE)
     Route: 048
  12. CYTARABINE. [Suspect]
     Active Substance: CYTARABINE
     Indication: PRODUCT USED FOR UNKNOWN INDICATION
     Dosage: 300 MILLIGRAM/SQ. METER OVER 1 H (BLOCK A)
     Route: 042
  13. METHOTREXATE. [Suspect]
     Active Substance: METHOTREXATE
     Dosage: 450 MILLIGRAM/SQ. METER AFTER AT LEAST 14 DAYS, OVER 24 H
     Route: 042
  14. METHOTREXATE. [Suspect]
     Active Substance: METHOTREXATE
     Dosage: 50 MILLIGRAM/SQ. METER, AFTER AT LEAST 14 DAYS, BOLUS (BLOCK B)
     Route: 040
  15. METHOTREXATE. [Suspect]
     Active Substance: METHOTREXATE
     Dosage: ONE COURSE AS SECONDARY TREATMENT
  16. METHOTREXATE. [Suspect]
     Active Substance: METHOTREXATE
     Dosage: 450 MILLIGRAM/SQ. METER OVER 24 H (BLOCK A)
     Route: 042
  17. ENDOXAN                            /00021101/ [Suspect]
     Active Substance: CYCLOPHOSPHAMIDE
     Dosage: 200 MILLIGRAM/SQ. METER (PRELIMINARY PHASE (FACULTATIVE) FOR 1?5 DAYS)
     Route: 042
  18. LEUCOVORIN                         /00566701/ [Concomitant]
     Active Substance: LEUCOVORIN
     Indication: PROPHYLAXIS
     Dosage: 30 MILLIGRAM  (EACH 36, 42, 48, 54, 60, AND 66 H AFTER THE INFUSION)
     Route: 065
  19. ENDOXAN                            /00021101/ [Suspect]
     Active Substance: CYCLOPHOSPHAMIDE
     Indication: BURKITT^S LYMPHOMA
     Dosage: FOR 1?5 DAYS, AFTER AT LEAST 14 DAYS (BLOCK B)
     Route: 042

REACTIONS (3)
  - Anaemia [Unknown]
  - Leukopenia [Unknown]
  - Alopecia [Unknown]
